FAERS Safety Report 5048963-8 (Version None)
Quarter: 2006Q3

REPORT INFORMATION
  Report Type: 
  Country: None (occurrence: None)
  Receive Date: 20060712
  Receipt Date: 20051006
  Transmission Date: 20061208
  Serious: No
  Sender: FDA-Public Use
  Company Number: US-GLAXOSMITHKLINE-A0577373A

PATIENT
  Age: 65 Year
  Sex: Female

DRUGS (19)
  1. IMITREX [Suspect]
     Indication: MIGRAINE
     Dosage: 100MG AS REQUIRED
     Route: 048
     Dates: start: 19950101
  2. LAMICTAL [Suspect]
     Indication: POST-TRAUMATIC STRESS DISORDER
     Dosage: 300MG PER DAY
     Route: 048
     Dates: start: 20050601
  3. LEXAPRO [Concomitant]
  4. UNITHROID [Concomitant]
  5. ALLEGRA [Concomitant]
  6. LOPID [Concomitant]
  7. SANCTURA [Concomitant]
  8. ACTONEL [Concomitant]
  9. TRAZODONE HCL [Concomitant]
  10. COMPAZINE [Concomitant]
  11. ASPIRIN [Concomitant]
  12. ZANTAC [Concomitant]
  13. CELEBREX [Concomitant]
  14. PREVACID [Concomitant]
  15. AMBIEN [Concomitant]
  16. ROBAXIN [Concomitant]
  17. VICODIN [Concomitant]
  18. IMITREX [Concomitant]
  19. MAXALT [Concomitant]

REACTIONS (2)
  - DRUG INEFFECTIVE [None]
  - RASH [None]
